FAERS Safety Report 5859574-6 (Version None)
Quarter: 2008Q3

REPORT INFORMATION
  Report Type: 
  Country: None (occurrence: None)
  Receive Date: 20080827
  Receipt Date: 20080826
  Transmission Date: 20090109
  Serious: Yes (Other)
  Sender: FDA-Public Use
  Company Number: B0533849A

PATIENT
  Age: 50 Year
  Sex: Female
  Weight: 60 kg

DRUGS (6)
  1. LAPATINIB [Suspect]
     Indication: BREAST CANCER
     Dosage: 1500MG PER DAY
     Route: 048
     Dates: start: 20080617
  2. PACLITAXEL [Suspect]
     Indication: BREAST CANCER
     Dosage: 80MGM2 PER DAY
     Route: 042
     Dates: start: 20080617
  3. ZANTAC [Concomitant]
     Indication: CHEMOTHERAPY
     Dosage: 50MG PER DAY
     Route: 042
     Dates: start: 20080616
  4. ZYRTEC [Concomitant]
     Indication: CHEMOTHERAPY
     Dosage: 10MG PER DAY
     Route: 048
     Dates: start: 20080616
  5. PHENERGAN HCL [Concomitant]
     Indication: CHEMOTHERAPY
     Dosage: 50MG PER DAY
     Route: 030
     Dates: start: 20080616
  6. DEXAMETHASONE TAB [Concomitant]
     Indication: CHEMOTHERAPY
     Dosage: 10MG PER DAY
     Route: 048
     Dates: start: 20080408

REACTIONS (1)
  - ALANINE AMINOTRANSFERASE INCREASED [None]
